FAERS Safety Report 5093757-0 (Version None)
Quarter: 2006Q3

REPORT INFORMATION
  Report Type: 
  Country: None (occurrence: None)
  Receive Date: 20060831
  Receipt Date: 20060823
  Transmission Date: 20061208
  Serious: Yes (Other)
  Sender: FDA-Public Use
  Company Number: AU-JNJFOC-20060805138

PATIENT
  Age: 20 Year
  Sex: Male

DRUGS (1)
  1. RISPERDAL [Suspect]
     Indication: SCHIZOPHRENIA

REACTIONS (2)
  - BLOOD PROLACTIN INCREASED [None]
  - PITUITARY TUMOUR BENIGN [None]
